FAERS Safety Report 6955608-6 (Version None)
Quarter: 2010Q3

REPORT INFORMATION
  Report Type: 
  Country: None (occurrence: None)
  Receive Date: 20100830
  Receipt Date: 20100824
  Transmission Date: 20110219
  Serious: Yes (Death, Hospitalization)
  Sender: FDA-Public Use
  Company Number: US-ROCHE-693607

PATIENT
  Age: 45 Year
  Sex: Female
  Weight: 65 kg

DRUGS (7)
  1. BEVACIZUMAB [Suspect]
     Dosage: LAST DOPSE PRIOR TO SAE ON 8 SEP 2009, FREQUENCY 30-90 MIN ON DAYS 1 AND 15 OF 28 DAY CYCLE.
     Route: 042
     Dates: start: 20090807
  2. SORAFENIB [Suspect]
     Dosage: FREQUENCY: DAY 1-5,812,15-19, AND 22-26, LAST DOSE PRIOR TO SAE 1 SEP 2009.TOTAL DOSE: 8000 MG
     Route: 048
     Dates: start: 20090807
  3. AMLODIPINE [Concomitant]
  4. ALPRAZOLAM [Concomitant]
  5. ZOFRAN [Concomitant]
  6. NYSTATIN [Concomitant]
  7. MORPHINE [Concomitant]

REACTIONS (3)
  - DISEASE PROGRESSION [None]
  - HYPERTENSION [None]
  - REVERSIBLE POSTERIOR LEUKOENCEPHALOPATHY SYNDROME [None]
